FAERS Safety Report 10442452 (Version 4)
Quarter: 2015Q1

REPORT INFORMATION
  Report Type: Spontaneous
  Country: US (occurrence: None)
  Receive Date: 20140908
  Receipt Date: 20150303
  Transmission Date: 20150720
  Serious: Yes (Life-Threatening, Hospitalization, Disabling, Other)
  Sender: FDA-Public Use
  Company Number: 1713747-2014-999132

PATIENT
  Age: 30 Year
  Sex: Male

DRUGS (2)
  1. DELFLEX [Suspect]
     Active Substance: CALCIUM CHLORIDE\DEXTROSE MONOHYDRATE\MAGNESIUM CHLORIDE\SODIUM CHLORIDE\SODIUM LACTATE
     Indication: PERITONEAL DIALYSIS
     Dosage: UNK
  2. LIBERTY CYCLER AND CYCLER TUBING (CASSETTE) [Concomitant]

REACTIONS (17)
  - Renal haematoma [None]
  - Pyelonephritis [None]
  - Metabolic acidosis [None]
  - Cold sweat [None]
  - Anxiety [None]
  - Sepsis [None]
  - Hypotension [None]
  - Chronic kidney disease [None]
  - Hypertension [None]
  - Device related infection [None]
  - Haemorrhage [None]
  - Headache [None]
  - Pain [None]
  - Fungal peritonitis [None]
  - Peritonitis bacterial [None]
  - Peritonitis [None]
  - Salivary hypersecretion [None]

NARRATIVE: CASE EVENT DATE: 20090811
